FAERS Safety Report 8895021 (Version 1)
Quarter: 2012Q4

REPORT INFORMATION
  Report Type: 
  Country: AU (occurrence: AU)
  Receive Date: 20121108
  Receipt Date: 20121108
  Transmission Date: 20130627
  Serious: Yes (Other)
  Sender: FDA-Public Use
  Company Number: AU-PFIZER INC-2012276264

PATIENT
  Age: 22 Year
  Sex: Male

DRUGS (2)
  1. SULFASALAZINE [Suspect]
     Indication: ULCERATIVE COLITIS
     Dosage: UNK
     Route: 048
  2. MESALAZINE [Suspect]
     Indication: ULCERATIVE COLITIS
     Dosage: UNK

REACTIONS (4)
  - Lupus-like syndrome [Recovering/Resolving]
  - Serositis [Recovering/Resolving]
  - Pericardial effusion [Recovering/Resolving]
  - Cardiac tamponade [Recovering/Resolving]
